FAERS Safety Report 6306129-5 (Version None)
Quarter: 2009Q3

REPORT INFORMATION
  Report Type: 
  Country: None (occurrence: None)
  Receive Date: 20090810
  Receipt Date: 20090802
  Transmission Date: 20100115
  Serious: Yes (Other)
  Sender: FDA-Public Use
  Company Number: CHPA2009US16339

PATIENT
  Age: 38 Year
  Sex: Female
  Weight: 86.2 kg

DRUGS (3)
  1. BENEFIBER W/ WHEAT DEXTRIN          (WHEAT DEXTRIN) CAPLET [Suspect]
     Indication: MEDICAL DIET
     Dosage: 2 DF, IN THE EVENING, ORAL
     Route: 048
     Dates: start: 20090801, end: 20090803
  2. DETROL [Concomitant]
  3. SYNTHORID (LEVOTHYROXINE SODIUM) [Concomitant]

REACTIONS (2)
  - PRURITUS [None]
  - URTICARIA PAPULAR [None]
